FAERS Safety Report 18611908 (Version 1)
Quarter: 2020Q4

REPORT INFORMATION
  Report Type: Spontaneous
  Country: DE (occurrence: DE)
  Receive Date: 20201214
  Receipt Date: 20201214
  Transmission Date: 20210114
  Serious: Yes (Hospitalization, Other)
  Sender: FDA-Public Use
  Company Number: DE-PFIZER INC-2020487082

PATIENT
  Sex: Female
  Weight: 85 kg

DRUGS (3)
  1. METHYLPREDNISOLONE. [Suspect]
     Active Substance: METHYLPREDNISOLONE
     Dosage: 4 MG, 1X/DAY (QD, 1X1DF)
     Route: 065
     Dates: start: 20080828
  2. METHOTREXATE SODIUM. [Suspect]
     Active Substance: METHOTREXATE SODIUM
     Dosage: 22.5 MG, WEEKLY (PRE-FILLED SYRINGE)
     Route: 065
     Dates: start: 20080828
  3. COSENTYX [Suspect]
     Active Substance: SECUKINUMAB
     Dosage: 150 MG, EVERY 4 WEEKS (Q4W)
     Route: 065
     Dates: start: 20200122, end: 2020

REACTIONS (3)
  - Lumbar spinal stenosis [Recovered/Resolved]
  - Vertebral foraminal stenosis [Unknown]
  - Osteochondrosis [Unknown]

NARRATIVE: CASE EVENT DATE: 20200305
